FAERS Safety Report 4894446-5 (Version None)
Quarter: 2006Q1

REPORT INFORMATION
  Report Type: 
  Country: None (occurrence: None)
  Receive Date: 20060127
  Receipt Date: 20051202
  Transmission Date: 20060701
  Serious: Yes (Life-Threatening, Other)
  Sender: FDA-Public Use
  Company Number: PL-NOVOPROD-249052

PATIENT
  Age: 71 Year
  Sex: Female
  Weight: 94 kg

DRUGS (3)
  1. INSULATARD NOVOLET [Suspect]
     Indication: INSULIN-REQUIRING TYPE II DIABETES MELLITUS
     Dosage: 6 IU, QD
     Dates: start: 20051115, end: 20051122
  2. EUTHYROX [Concomitant]
     Dosage: 100 MG, QD
     Dates: start: 20020224
  3. DILATREND [Concomitant]
     Dosage: 125 MG, QD
     Dates: start: 20051115

REACTIONS (4)
  - CONDITION AGGRAVATED [None]
  - DYSPNOEA [None]
  - HYPERSENSITIVITY [None]
  - SERUM SICKNESS [None]
